FAERS Safety Report 8816492 (Version 1)
Quarter: 2012Q4

REPORT INFORMATION
  Report Type: Spontaneous
  Country: CH (occurrence: None)
  Receive Date: 20120927
  Receipt Date: 20120927
  Transmission Date: 20130627
  Serious: Yes (Hospitalization)
  Sender: FDA-Public Use
  Company Number: 2012090100

PATIENT
  Age: 87 Year
  Sex: Male

DRUGS (7)
  1. TOREM [Suspect]
     Route: 048
  2. TILUR [Suspect]
     Indication: INTRACTABLE PAIN
     Route: 048
  3. PLAVIX [Suspect]
     Indication: CHRONIC ISCHEMIC HEART DISEASE, UNSPECIFIED
     Route: 048
  4. ENALAPRIL MALEATE [Suspect]
     Route: 048
  5. CORVATON (MOLSIDOMINE) [Concomitant]
  6. SIFROL (PRAMIPEXOLE DIHYDROCHLORIDE) [Concomitant]
  7. NITROGLYCERIN (GLYCERYL TRINITRATE) [Concomitant]

REACTIONS (12)
  - Melaena [None]
  - Haemoglobin decreased [None]
  - Asthenia [None]
  - Abdominal pain upper [None]
  - Duodenal ulcer [None]
  - Renal failure acute [None]
  - Gastrointestinal haemorrhage [None]
  - Anaemia [None]
  - Bundle branch block right [None]
  - Electrocardiogram ST segment depression [None]
  - Acute prerenal failure [None]
  - Drug interaction [None]
